FAERS Safety Report 14146144 (Version 1)
Quarter: 2017Q4

REPORT INFORMATION
  Report Type: Spontaneous
  Country: US (occurrence: US)
  Receive Date: 20171031
  Receipt Date: 20171031
  Transmission Date: 20180321
  Serious: Yes (Other)
  Sender: FDA-Public Use
  Company Number: US-SA-2017SA209081

PATIENT
  Age: 44 Year
  Sex: Male

DRUGS (4)
  1. DUPIXENT [Suspect]
     Active Substance: DUPILUMAB
     Route: 058
  2. METHOTREXATE. [Suspect]
     Active Substance: METHOTREXATE
     Route: 065
  3. PREDNISONE. [Suspect]
     Active Substance: PREDNISONE
     Route: 065
  4. CYCLOSPORINE. [Suspect]
     Active Substance: CYCLOSPORINE
     Route: 065

REACTIONS (7)
  - Hypersensitivity vasculitis [Unknown]
  - Acarodermatitis [Unknown]
  - Immunosuppression [Unknown]
  - Erythema [Unknown]
  - Scab [Unknown]
  - Acute generalised exanthematous pustulosis [Unknown]
  - Dermatitis [Unknown]
